FAERS Safety Report 8559944-1 (Version None)
Quarter: 2012Q3

REPORT INFORMATION
  Report Type: 
  Country: None (occurrence: None)
  Receive Date: 20120802
  Receipt Date: 20120725
  Transmission Date: 20120928
  Serious: Yes (Other)
  Sender: FDA-Public Use
  Company Number: US-BAYER-2012-074513

PATIENT
  Sex: Female

DRUGS (2)
  1. MIRENA [Suspect]
     Dosage: 20 MCG/24HR, CONT
     Route: 015
     Dates: start: 20110807, end: 20120501
  2. MIRENA [Suspect]
     Dosage: 20 MCG/24HR, CONT
     Route: 015
     Dates: start: 20120511

REACTIONS (4)
  - MENORRHAGIA [None]
  - AMENORRHOEA [None]
  - THERAPEUTIC PRODUCT INEFFECTIVE [None]
  - GENITAL HAEMORRHAGE [None]
